FAERS Safety Report 6303526-9 (Version None)
Quarter: 2009Q3

REPORT INFORMATION
  Report Type: 
  Country: None (occurrence: None)
  Receive Date: 20090807
  Receipt Date: 20090807
  Transmission Date: 20100115
  Serious: Yes (Other)
  Sender: FDA-Public Use
  Company Number: None

PATIENT
  Sex: Female
  Weight: 58.9676 kg

DRUGS (2)
  1. ESTRACE [Suspect]
     Indication: MUCOSAL DRYNESS
     Dosage: 2 GMS VAG CHS X2 WKS THEN 1GM Q 2WKS VAGINAL
     Route: 067
     Dates: start: 20090706, end: 20090717
  2. SYTHROID [Concomitant]

REACTIONS (10)
  - ALOPECIA [None]
  - COGNITIVE DISORDER [None]
  - DIZZINESS [None]
  - DYSPEPSIA [None]
  - DYSPNOEA [None]
  - FATIGUE [None]
  - FLATULENCE [None]
  - MUSCLE SPASMS [None]
  - THIRST [None]
  - VISION BLURRED [None]
